FAERS Safety Report 9744443 (Version 2)
Quarter: 2014Q1

REPORT INFORMATION
  Report Type: Spontaneous
  Country: US (occurrence: US)
  Receive Date: 20131210
  Receipt Date: 20140117
  Transmission Date: 20141002
  Serious: Yes (Other)
  Sender: FDA-Public Use
  Company Number: US-ASTRAZENECA-2013SE88392

PATIENT
  Age: 85 Year
  Sex: Female
  Weight: 77.1 kg

DRUGS (7)
  1. ANASTROZOLE [Suspect]
     Indication: BLOOD OESTROGEN ABNORMAL
     Route: 048
     Dates: start: 2008
  2. SYMBICORT [Suspect]
     Indication: BRONCHITIS CHRONIC
     Dosage: 160/4.5 MCG TWO INHALATIONS BID
     Route: 055
     Dates: start: 2009
  3. SPIRIVA [Concomitant]
     Indication: BRONCHITIS CHRONIC
     Dosage: ONCE DAILY
     Dates: start: 2005
  4. SYNTHROID [Concomitant]
     Indication: THYROID DISORDER
     Dates: start: 2006
  5. PERCOCET [Concomitant]
     Indication: BACK PAIN
     Dosage: 5/325 MG 1 OR 2 DAILY
     Dates: start: 2003
  6. FUROSEMIDE [Concomitant]
  7. WARFARIN [Concomitant]

REACTIONS (6)
  - Thrombosis [Unknown]
  - Lower limb fracture [Unknown]
  - Adverse event [Not Recovered/Not Resolved]
  - Visual impairment [Not Recovered/Not Resolved]
  - Intentional drug misuse [Unknown]
  - Circumstance or information capable of leading to medication error [Unknown]
